FAERS Safety Report 24270461 (Version 1)
Quarter: 2024Q3

REPORT INFORMATION
  Report Type: Spontaneous
  Country: US (occurrence: US)
  Receive Date: 20240830
  Receipt Date: 20240830
  Transmission Date: 20241016
  Serious: No
  Sender: MERCK
  Company Number: US-009507513-2408USA007719

PATIENT
  Age: 50 Year
  Sex: Female
  Weight: 62 kg

DRUGS (1)
  1. NOXAFIL [Suspect]
     Active Substance: POSACONAZOLE
     Indication: Meningitis coccidioides
     Dosage: 400 MILLIGRAM, QD
     Route: 048

REACTIONS (1)
  - Product use in unapproved indication [Unknown]
